FAERS Safety Report 17593503 (Version 1)
Quarter: 2020Q1

REPORT INFORMATION
  Report Type: Spontaneous
  Country: US (occurrence: US)
  Receive Date: 20200327
  Receipt Date: 20200327
  Transmission Date: 20200409
  Serious: No
  Sender: FDA-Public Use
  Company Number: US-ASTRAZENECA-2020SE41000

PATIENT
  Age: 63 Year
  Sex: Female

DRUGS (1)
  1. PRILOSEC OTC [Suspect]
     Active Substance: OMEPRAZOLE MAGNESIUM
     Dosage: 1 TABLET, 1 /DAY
     Route: 048
     Dates: start: 202002, end: 20200305

REACTIONS (3)
  - Urticaria [Not Recovered/Not Resolved]
  - Incorrect product administration duration [Unknown]
  - Pruritus [Not Recovered/Not Resolved]

NARRATIVE: CASE EVENT DATE: 2020
